FAERS Safety Report 23398700 (Version 1)
Quarter: 2024Q1

REPORT INFORMATION
  Report Type: Spontaneous
  Country: US (occurrence: US)
  Receive Date: 20240112
  Receipt Date: 20240112
  Transmission Date: 20240409
  Serious: Yes (Hospitalization, Other)
  Sender: FDA-Public Use
  Company Number: US-SA-SAC20240105001343

PATIENT

DRUGS (1)
  1. LARONIDASE [Suspect]
     Active Substance: LARONIDASE
     Indication: Mucopolysaccharidosis I
     Dosage: 2.9 (UNIT NOT KNOWN), QW
     Route: 042
     Dates: start: 20231018

REACTIONS (1)
  - Complications of bone marrow transplant [Recovering/Resolving]

NARRATIVE: CASE EVENT DATE: 20231231
